FAERS Safety Report 9424666 (Version 3)
Quarter: 2013Q3

REPORT INFORMATION
  Report Type: Report from Study
  Country: DE (occurrence: DE)
  Receive Date: 20130729
  Receipt Date: 20130930
  Transmission Date: 20140515
  Serious: Yes (Hospitalization)
  Sender: FDA-Public Use
  Company Number: DE-PFIZER INC-2013211299

PATIENT
  Age: 55 Year
  Sex: Female
  Weight: 69 kg

DRUGS (7)
  1. TOFACITINIB CITRATE [Suspect]
     Indication: RHEUMATOID ARTHRITIS
     Dosage: 10 TWICE DAILY (1-0-1)
     Route: 048
     Dates: start: 20101018
  2. LEFLUNOMIDE [Suspect]
     Indication: RHEUMATOID ARTHRITIS
     Dosage: 20 MG, 1X/DAY, 1-0-0
     Route: 048
     Dates: start: 200710
  3. RAMIPRIL [Concomitant]
     Indication: HYPERTENSION
     Dosage: UNK
     Dates: start: 200708
  4. PANTOPRAZOL [Concomitant]
     Dosage: UNK
     Dates: start: 2012
  5. DICLOFENAC [Concomitant]
     Indication: RHEUMATOID ARTHRITIS
     Dosage: 75 MG
     Dates: start: 201210, end: 20130716
  6. SYNTESTAN [Concomitant]
     Indication: RHEUMATOID ARTHRITIS
     Dosage: UNK
     Dates: start: 2010
  7. LEVOTHYROXINE [Concomitant]
     Dosage: UNK
     Dates: start: 1990

REACTIONS (1)
  - Vestibular neuronitis [Recovered/Resolved]
